FAERS Safety Report 6189229-2 (Version None)
Quarter: 2009Q2

REPORT INFORMATION
  Report Type: 
  Country: None (occurrence: None)
  Receive Date: 20090512
  Receipt Date: 20090506
  Transmission Date: 20091009
  Serious: Yes (Hospitalization)
  Sender: FDA-Public Use
  Company Number: GXKR2009DE05540

PATIENT
  Age: 89 Year
  Sex: Female
  Weight: 58.2 kg

DRUGS (13)
  1. HYDROCHLOROTHIAZIDE [Suspect]
     Indication: HYPERTENSION
     Dosage: 12.5 MG, QD, ORAL
     Route: 048
     Dates: start: 20090220, end: 20090325
  2. CIPROBAY (CIPROFLOXACIN) (CIPROFLOXACIN) 250MG [Concomitant]
     Indication: BACTERIAL INFECTION
     Dosage: 250 MG, BID, ORAL
     Route: 048
     Dates: start: 20090220, end: 20090304
  3. ROCEPHIN [Suspect]
     Indication: BACTERIAL INFECTION
     Dosage: 1000 MG, QD, INTRAVENOUS
     Route: 042
     Dates: start: 20090220, end: 20090304
  4. ZINNAT   (CEFUROXIME AXETIL) 250MG [Suspect]
     Indication: DIVERTICULITIS
     Dosage: 250 MG, BID, ORAL
     Route: 048
     Dates: start: 20090304, end: 20090314
  5. AMLODIPINE [Concomitant]
  6. ASS             (ACETYLSALICYLIC ACID) , 100 MG [Concomitant]
  7. FOLIC ACID [Concomitant]
  8. MCP     (METOCLOPRAMIDE HYDROCHLORIDE), 10 MG [Concomitant]
  9. EMBOLEX [Concomitant]
  10. PANTOZOL (PANTOPRAZOLE SODIUM) , 40 MG [Concomitant]
  11. PEROCUR FORTE (SACCHAROMYCES BOULARDII) [Concomitant]
  12. RAMIPRIL [Concomitant]
  13. VITAMIN B DUO   (PYRIDOXINE HYDROCHLORIDE, THIAMINE HYDROCHLORIDE) [Concomitant]

REACTIONS (2)
  - DEHYDRATION [None]
  - GASTROENTERITIS CLOSTRIDIAL [None]
